FAERS Safety Report 8044459-X (Version None)
Quarter: 2011Q4

REPORT INFORMATION
  Report Type: 
  Country: None (occurrence: None)
  Receive Date: 20111202
  Receipt Date: 20110105
  Transmission Date: 20120403
  Serious: Yes (Hospitalization, Disabling)
  Sender: FDA-Public Use
  Company Number: 2011SP000372

PATIENT
  Age: 47 Year
  Sex: Female

DRUGS (1)
  1. NUVARING [Suspect]
     Indication: PRODUCT USED FOR UNKNOWN INDICATION
     Dates: start: 20060601, end: 20090119

REACTIONS (3)
  - CEREBROVASCULAR ACCIDENT [None]
  - MIGRAINE [None]
  - ISCHAEMIC STROKE [None]
